FAERS Safety Report 10799223 (Version 1)
Quarter: 2015Q1

REPORT INFORMATION
  Report Type: Spontaneous
  Country: US (occurrence: US)
  Receive Date: 20150216
  Receipt Date: 20150216
  Transmission Date: 20150721
  Serious: No
  Sender: FDA-Public Use
  Company Number: US-ALLERGAN-1401108US

PATIENT
  Age: 82 Year
  Sex: Male

DRUGS (5)
  1. BLOOD PRESSURE MEDICAINE NOS [Concomitant]
     Indication: HYPERTENSION
     Dosage: UNK
  2. BLOOD THINNER NOS [Concomitant]
     Indication: ATRIAL FIBRILLATION
     Dosage: UNK
  3. RESTASIS [Suspect]
     Active Substance: CYCLOSPORINE
     Indication: DRY EYE
     Dosage: 2 GTT, BID
     Route: 047
  4. GENTEAL LUBRICANT EYE GEL DRY [Concomitant]
     Indication: DRY EYE
     Dosage: UNK, PRN
     Route: 047
     Dates: start: 201312
  5. REFRESH OPTIVE ADVANCED            /07868701/ [Concomitant]
     Indication: DRY EYE
     Dosage: 2 GTT, BID
     Route: 047
     Dates: start: 201312

REACTIONS (2)
  - Eye irritation [Recovering/Resolving]
  - Eye pain [Recovering/Resolving]
